FAERS Safety Report 8833591 (Version 2)
Quarter: 2012Q4

REPORT INFORMATION
  Report Type: 
  Country: JP (occurrence: JP)
  Receive Date: 20121010
  Receipt Date: 20121022
  Transmission Date: 20130627
  Serious: Yes (Death, Other)
  Sender: FDA-Public Use
  Company Number: JP-BAXTER-2012BAX019007

PATIENT
  Age: 65 Year
  Sex: Female

DRUGS (2)
  1. FEIBA [Suspect]
     Indication: HAEMOSTASIS
     Route: 042
     Dates: start: 20120426, end: 20120427
  2. NOVOSEVEN [Concomitant]
     Indication: HAEMOSTASIS
     Route: 065
     Dates: start: 20120420, end: 20120425

REACTIONS (2)
  - Cerebral haemorrhage [Fatal]
  - Cardio-respiratory arrest [Unknown]
